FAERS Safety Report 20138703 (Version 5)
Quarter: 2022Q1

REPORT INFORMATION
  Report Type: Spontaneous
  Country: IT (occurrence: IT)
  Receive Date: 20211202
  Receipt Date: 20220113
  Transmission Date: 20220423
  Serious: Yes (Hospitalization, Other)
  Sender: FDA-Public Use
  Company Number: None

PATIENT
  Age: 86 Year
  Sex: Female

DRUGS (4)
  1. FONDAPARINUX [Suspect]
     Active Substance: FONDAPARINUX
     Indication: Bedridden
     Dosage: 2.5 MILLIGRAM, QD
     Route: 058
     Dates: start: 20200220, end: 20211009
  2. FONDAPARINUX [Suspect]
     Active Substance: FONDAPARINUX
     Indication: Thrombosis prophylaxis
     Dosage: UNK
     Route: 065
  3. RISPERIDONE [Concomitant]
     Active Substance: RISPERIDONE
     Indication: Product used for unknown indication
     Dosage: 1.5 MILLIGRAM, QD
     Route: 048
  4. RISPERIDONE [Concomitant]
     Active Substance: RISPERIDONE
     Dosage: UNK

REACTIONS (5)
  - Epistaxis [Recovering/Resolving]
  - Haematemesis [Recovering/Resolving]
  - Anaemia [Recovering/Resolving]
  - Off label use [Recovering/Resolving]
  - Drug abuse [Unknown]

NARRATIVE: CASE EVENT DATE: 20200220
